FAERS Safety Report 5894785-5 (Version None)
Quarter: 2008Q3

REPORT INFORMATION
  Report Type: 
  Country: None (occurrence: None)
  Receive Date: 20080924
  Receipt Date: 20080626
  Transmission Date: 20090109
  Serious: No
  Sender: FDA-Public Use
  Company Number: US-ASTRAZENECA-2008UW12292

PATIENT
  Age: 558 Month
  Sex: Male
  Weight: 68 kg

DRUGS (1)
  1. SEROQUEL [Suspect]
     Indication: PARANOIA
     Dosage: 200 MG IN MORNING AND 450 MG IN THE EVENING
     Route: 048
     Dates: start: 20070901

REACTIONS (2)
  - MUSCULAR WEAKNESS [None]
  - SOMNOLENCE [None]
